FAERS Safety Report 25642565 (Version 1)
Quarter: 2025Q3

REPORT INFORMATION
  Report Type: Spontaneous
  Country: US (occurrence: US)
  Receive Date: 20250805
  Receipt Date: 20250805
  Transmission Date: 20251021
  Serious: No
  Sender: CHIESI
  Company Number: US-CHIESI-2024CHF04267

PATIENT

DRUGS (5)
  1. KENGREAL [Suspect]
     Active Substance: CANGRELOR
     Indication: Carotid revascularisation
     Route: 042
     Dates: start: 20240510
  2. KENGREAL [Suspect]
     Active Substance: CANGRELOR
     Indication: Off label use
     Route: 042
     Dates: start: 20240510
  3. ELIQUIS [Concomitant]
     Active Substance: APIXABAN
     Indication: Atrial fibrillation
  4. ASPIRIN [Concomitant]
     Active Substance: ASPIRIN
     Indication: Product used for unknown indication
  5. PLAVIX [Concomitant]
     Active Substance: CLOPIDOGREL BISULFATE
     Indication: Product used for unknown indication

REACTIONS (1)
  - Off label use [Unknown]

NARRATIVE: CASE EVENT DATE: 20240510
